FAERS Safety Report 12847514 (Version 3)
Quarter: 2016Q4

REPORT INFORMATION
  Report Type: Spontaneous
  Country: FR (occurrence: FR)
  Receive Date: 20161014
  Receipt Date: 20161202
  Transmission Date: 20170207
  Serious: Yes (Other)
  Sender: FDA-Public Use
  Company Number: FR-TEVA-698386ROM

PATIENT
  Age: 68 Year
  Sex: Male
  Weight: 66 kg

DRUGS (19)
  1. AVASTIN [Suspect]
     Active Substance: BEVACIZUMAB
     Indication: ADENOCARCINOMA OF COLON
  2. NATISPRAY 0.15MG/DOSE [Concomitant]
     Dosage: ONE MAXIMUM PULVERISATION PER INTAKE AND TWO MAXIMUM PULVERISATION PER DAY
     Route: 060
     Dates: start: 20160929
  3. LACRINORM 0.2% [Concomitant]
     Dosage: ONE DROP MAXIMUM PER INTAKE AND MAXIMUM FOUR DROPS PER DAY
     Route: 047
     Dates: start: 20160923
  4. OXALIPLATIN. [Suspect]
     Active Substance: OXALIPLATIN
     Indication: METASTASES TO LIVER
     Dosage: FIRST CYCLE OF FOLFORINOX PROTOCOL
     Route: 042
     Dates: start: 20160927, end: 20160929
  5. HEC [Concomitant]
     Dosage: 2 DOSAGE FORMS DAILY; ONE APPLICATION AT 10PM AND AT 8PM
     Route: 045
     Dates: start: 20160923
  6. OXALIPLATIN. [Suspect]
     Active Substance: OXALIPLATIN
     Indication: ADENOCARCINOMA OF COLON
  7. FLUCONAZOLE 50MG/5ML [Concomitant]
     Dosage: 3 DOSAGE FORMS DAILY; A MEASURING SPOON AT 8AM AT NOON AND AT 6PM
     Route: 048
     Dates: start: 20160929, end: 20161013
  8. BUDESONIDE + FORMOTEROL 400MCG/12MCG/DOSE [Concomitant]
     Route: 055
     Dates: start: 20160923
  9. IRINOTECAN [Suspect]
     Active Substance: IRINOTECAN
     Indication: ADENOCARCINOMA OF COLON
  10. 5-FU [Suspect]
     Active Substance: FLUOROURACIL
     Indication: ADENOCARCINOMA OF COLON
  11. 5-FU [Suspect]
     Active Substance: FLUOROURACIL
     Indication: METASTASES TO LIVER
     Dosage: FIRST CYCLE OF FOLFORINOX PROTOCOL
     Route: 042
     Dates: start: 20160927, end: 20160929
  12. IRINOTECAN [Suspect]
     Active Substance: IRINOTECAN
     Indication: METASTASES TO LIVER
     Dosage: FIRST CYCLE OF FOLFORINOX PROTOCOL
     Route: 042
     Dates: start: 20160927, end: 20160929
  13. AVASTIN [Suspect]
     Active Substance: BEVACIZUMAB
     Indication: METASTASES TO LIVER
     Route: 042
     Dates: start: 20160927, end: 20160929
  14. SODIUM BICARBONATE 1.4% [Concomitant]
     Dosage: 6 DOSAGE FORMS DAILY; MOUTWASH AT 8 AM, 10 AM, AT NOON, AT 6PM, 8PM AND 10PM
     Route: 048
     Dates: start: 20160929, end: 20161013
  15. EUPANTOL 40MG [Concomitant]
     Dosage: 1 DOSAGE FORMS DAILY; TOOK AT 6PM
     Route: 048
     Dates: start: 20160929, end: 20161028
  16. BETNEVAL 0.1% [Concomitant]
     Dosage: 1 DOSAGE FORMS DAILY; ONE APPLICATION AT 10AM
     Route: 003
     Dates: start: 20160929, end: 20161008
  17. EUPHYTOSE [Concomitant]
     Active Substance: HERBALS
     Indication: POOR QUALITY SLEEP
     Dosage: 2 DOSAGE FORMS DAILY; TOOK IN THE EVENING
     Route: 048
     Dates: start: 20160923
  18. TARDYFERON 80MG [Concomitant]
     Dosage: 2 DOSAGE FORMS DAILY; ONE INTAKE AT 8:00 AM AND AT NOON
     Route: 048
     Dates: start: 20160924
  19. TEVAGRASTIM 48 MUI/0.8 ML [Suspect]
     Active Substance: FILGRASTIM
     Indication: NEUTROPENIA
     Route: 058
     Dates: start: 20160929, end: 20160929

REACTIONS (5)
  - Chest pain [Recovered/Resolved]
  - Tachycardia [Recovered/Resolved]
  - Blood pressure decreased [Recovered/Resolved]
  - Malaise [Recovered/Resolved]
  - Hyperhidrosis [Recovered/Resolved]

NARRATIVE: CASE EVENT DATE: 20160929
